FAERS Safety Report 4290614-4 (Version None)
Quarter: 2004Q1

REPORT INFORMATION
  Report Type: 
  Country: None (occurrence: None)
  Receive Date: 20040209
  Receipt Date: 20040126
  Transmission Date: 20041129
  Serious: Yes (Disabling)
  Sender: FDA-Public Use
  Company Number: 04P-056-0248945-00

PATIENT
  Age: 38 Year
  Sex: Male
  Weight: 72 kg

DRUGS (2)
  1. KALETRA [Suspect]
     Indication: HIV INFECTION
     Dosage: PER ORAL
     Route: 048
     Dates: start: 20031210
  2. NEVIRAPINE [Suspect]
     Indication: HIV INFECTION
     Dosage: PER ORAL
     Route: 048
     Dates: start: 20031210

REACTIONS (5)
  - DERMATITIS BULLOUS [None]
  - EYE DISORDER [None]
  - LUNG DISORDER [None]
  - MUCOUS MEMBRANE DISORDER [None]
  - SKIN DISORDER [None]
